FAERS Safety Report 5010452-4 (Version None)
Quarter: 2006Q2

REPORT INFORMATION
  Report Type: 
  Country: None (occurrence: None)
  Receive Date: 20060523
  Receipt Date: 20060523
  Transmission Date: 20061013
  Serious: No
  Sender: FDA-Public Use
  Company Number: None

PATIENT
  Age: 75 Year
  Sex: Female
  Weight: 62.5 kg

DRUGS (2)
  1. HEPARIN [Suspect]
     Indication: ATRIAL FIBRILLATION
     Dosage: IV DRIP
     Route: 041
  2. HEPARIN [Suspect]
     Indication: COAGULOPATHY
     Dosage: IV DRIP
     Route: 041

REACTIONS (2)
  - SKIN ULCER [None]
  - WOUND SECRETION [None]
